FAERS Safety Report 20145948 (Version 2)
Quarter: 2021Q4

REPORT INFORMATION
  Report Type: Spontaneous
  Country: GB (occurrence: GB)
  Receive Date: 20211203
  Receipt Date: 20211206
  Transmission Date: 20220303
  Serious: Yes (Other)
  Sender: FDA-Public Use
  Company Number: GB-GLAXOSMITHKLINE-GBCH2021086291

PATIENT
  Age: 58 Year
  Sex: Male

DRUGS (1)
  1. ANADIN EXTRA [Suspect]
     Active Substance: ACETAMINOPHEN\ASPIRIN\CAFFEINE
     Indication: Back pain
     Dosage: BID
     Dates: start: 20211123, end: 20211123

REACTIONS (3)
  - Hallucination [Not Recovered/Not Resolved]
  - Insomnia [Recovering/Resolving]
  - Incorrect dose administered [Unknown]

NARRATIVE: CASE EVENT DATE: 20211123
